FAERS Safety Report 23037451 (Version 6)
Quarter: 2024Q1

REPORT INFORMATION
  Report Type: Report from Study
  Country: JP (occurrence: JP)
  Receive Date: 20231006
  Receipt Date: 20240229
  Transmission Date: 20240409
  Serious: Yes (Death, Hospitalization)
  Sender: FDA-Public Use
  Company Number: JP-JNJFOC-20231012478

PATIENT
  Age: 10 Year
  Sex: Male
  Weight: 21 kg

DRUGS (1)
  1. CONCERTA [Suspect]
     Active Substance: METHYLPHENIDATE HYDROCHLORIDE
     Indication: Attention deficit hyperactivity disorder
     Route: 048

REACTIONS (2)
  - Cerebellar haemorrhage [Fatal]
  - Epistaxis [Unknown]

NARRATIVE: CASE EVENT DATE: 20230101
